FAERS Safety Report 25034619 (Version 2)
Quarter: 2025Q1

REPORT INFORMATION
  Report Type: Spontaneous
  Country: FR (occurrence: FR)
  Receive Date: 20250304
  Receipt Date: 20250328
  Transmission Date: 20250409
  Serious: Yes (Death, Other)
  Sender: ALEXION PHARMACEUTICALS
  Company Number: FR-ASTRAZENECA-202503EEA000306FR

PATIENT
  Age: 79 Year
  Weight: 39 kg

DRUGS (16)
  1. ULTOMIRIS [Suspect]
     Active Substance: RAVULIZUMAB-CWVZ
     Indication: Myasthenia gravis
  2. ULTOMIRIS [Suspect]
     Active Substance: RAVULIZUMAB-CWVZ
  3. PYRIDOSTIGMINE [Concomitant]
     Active Substance: PYRIDOSTIGMINE
     Route: 065
  4. Oracillin [Concomitant]
     Route: 065
  5. Imurel [Concomitant]
     Route: 065
  6. PREDNISONE [Concomitant]
     Active Substance: PREDNISONE
     Route: 065
  7. WARFARIN [Concomitant]
     Active Substance: WARFARIN
     Route: 065
  8. LANSOPRAZOLE [Concomitant]
     Active Substance: LANSOPRAZOLE
     Route: 065
  9. LEVOTHYROXINE [Concomitant]
     Active Substance: LEVOTHYROXINE
     Route: 065
  10. AMIODARONE [Concomitant]
     Active Substance: AMIODARONE
     Route: 065
  11. TAHOR [Concomitant]
     Active Substance: ATORVASTATIN CALCIUM
     Route: 065
  12. RACECADOTRIL [Concomitant]
     Active Substance: RACECADOTRIL
     Route: 065
  13. SODIUM BICARBONATE [Concomitant]
     Active Substance: SODIUM BICARBONATE
     Route: 065
  14. RENVELA [Concomitant]
     Active Substance: SEVELAMER CARBONATE
     Route: 065
  15. Calcidose [Concomitant]
     Route: 065
  16. SMECTA [Concomitant]
     Active Substance: MONTMORILLONITE
     Route: 065

REACTIONS (2)
  - Death [Fatal]
  - Bacteraemia [Unknown]
